FAERS Safety Report 24658531 (Version 1)
Quarter: 2024Q4

REPORT INFORMATION
  Report Type: Spontaneous
  Country: US (occurrence: None)
  Receive Date: 20241122
  Receipt Date: 20241122
  Transmission Date: 20250115
  Serious: No
  Sender: Public
  Company Number: None

PATIENT
  Age: 52 Year
  Sex: Female
  Weight: 63.96 kg

DRUGS (2)
  1. COSENTYX [Suspect]
     Active Substance: SECUKINUMAB
     Indication: Ankylosing spondylitis
     Dosage: FREQUENCY : MONTHLY;?
     Route: 058
     Dates: start: 202410
  2. BENLYSTA [Suspect]
     Active Substance: BELIMUMAB
     Indication: Ankylosing spondylitis

REACTIONS (3)
  - Vulvovaginal mycotic infection [None]
  - Gastrooesophageal reflux disease [None]
  - Defaecation urgency [None]
